FAERS Safety Report 23642121 (Version 1)
Quarter: 2024Q1

REPORT INFORMATION
  Report Type: Spontaneous
  Country: PT (occurrence: PT)
  Receive Date: 20240318
  Receipt Date: 20240318
  Transmission Date: 20240410
  Serious: Yes (Life-Threatening, Hospitalization)
  Sender: FDA-Public Use
  Company Number: None

PATIENT
  Age: 37 Year
  Sex: Male
  Weight: 75 kg

DRUGS (4)
  1. OLANZAPINE [Suspect]
     Active Substance: OLANZAPINE
     Dosage: INGESTION OF 14 TABLETS OF OLANZAPINE 15MG IN A SINGLE DOSE
     Route: 048
     Dates: start: 20231227, end: 20231227
  2. FLUMAZENIL [Suspect]
     Active Substance: FLUMAZENIL
     Indication: Miosis
     Route: 042
     Dates: start: 20231228, end: 20231228
  3. FLUMAZENIL [Suspect]
     Active Substance: FLUMAZENIL
     Indication: Depressed level of consciousness
     Route: 042
     Dates: start: 20231228, end: 20231228
  4. ALPRAZOLAM [Suspect]
     Active Substance: ALPRAZOLAM
     Dosage: NO DOSAGE OR QUANTITY INGESTED KNOWN
     Route: 048
     Dates: start: 20231227

REACTIONS (5)
  - Bradycardia [Recovered/Resolved]
  - Toxicity to various agents [Recovered/Resolved]
  - Intentional overdose [Recovered/Resolved]
  - Depressed level of consciousness [Recovered/Resolved]
  - Miosis [Recovered/Resolved]

NARRATIVE: CASE EVENT DATE: 20231227
